FAERS Safety Report 17425207 (Version 2)
Quarter: 2020Q2

REPORT INFORMATION
  Report Type: Spontaneous
  Country: US (occurrence: US)
  Receive Date: 20200217
  Receipt Date: 20200408
  Transmission Date: 20200713
  Serious: No
  Sender: FDA-Public Use
  Company Number: US-AMGEN-USASP2020024503

PATIENT
  Age: 72 Year
  Sex: Female
  Weight: 72 kg

DRUGS (8)
  1. PREDNISONE. [Concomitant]
     Active Substance: PREDNISONE
     Indication: RHEUMATOID ARTHRITIS
     Dosage: 5 MILLIGRAM, QD
     Route: 048
     Dates: start: 2008
  2. METHOTREXATE. [Suspect]
     Active Substance: METHOTREXATE
     Indication: RHEUMATOID ARTHRITIS
     Dosage: UNK, THREE TIMES A WEEK
     Route: 048
     Dates: start: 2018
  3. METHOTREXATE SODIUM. [Suspect]
     Active Substance: METHOTREXATE SODIUM
     Indication: RHEUMATOID ARTHRITIS
     Dosage: UNK, WEEKLY
     Route: 065
     Dates: start: 2018, end: 2018
  4. HUMIRA [Suspect]
     Active Substance: ADALIMUMAB
     Indication: RHEUMATOID ARTHRITIS
     Dosage: UNK, WEEKLY
     Route: 065
     Dates: start: 2015, end: 2016
  5. VITAMIN D NOS [Concomitant]
     Active Substance: VITAMIN D NOS
     Indication: RHEUMATOID ARTHRITIS
     Dosage: 50000 MILLIGRAM, QWK
     Route: 048
     Dates: start: 2008
  6. FOLIC ACID. [Concomitant]
     Active Substance: FOLIC ACID
     Indication: RHEUMATOID ARTHRITIS
     Dosage: UNK
     Dates: start: 2008
  7. NAPROSYN [Concomitant]
     Active Substance: NAPROXEN
     Indication: INFLAMMATION
     Dosage: 500 MILLIGRAM, AS NEEDED
     Route: 048
     Dates: start: 2019
  8. ENBREL [Suspect]
     Active Substance: ETANERCEPT
     Indication: RHEUMATOID ARTHRITIS
     Dosage: UNK UNK, WEEKLY
     Route: 065
     Dates: start: 2018, end: 2018

REACTIONS (1)
  - Drug ineffective [Unknown]
